FAERS Safety Report 8138484-8 (Version None)
Quarter: 2012Q1

REPORT INFORMATION
  Report Type: 
  Country: None (occurrence: None)
  Receive Date: 20120215
  Receipt Date: 20120209
  Transmission Date: 20120608
  Serious: Yes (Hospitalization, Other)
  Sender: FDA-Public Use
  Company Number: US-PFIZER INC-2012033250

PATIENT
  Sex: Female
  Weight: 61.224 kg

DRUGS (2)
  1. PRISTIQ [Suspect]
     Indication: DEPRESSION
     Dosage: UNK
     Dates: start: 20110101, end: 20120101
  2. PROBIOTICS [Concomitant]
     Indication: ABDOMINAL DISCOMFORT
     Dosage: UNK

REACTIONS (9)
  - CONVULSION [None]
  - FALL [None]
  - DRUG INEFFECTIVE [None]
  - DECREASED APPETITE [None]
  - HEAD INJURY [None]
  - FOREIGN BODY [None]
  - DEHYDRATION [None]
  - TONGUE BITING [None]
  - BALANCE DISORDER [None]
